FAERS Safety Report 5164534-7 (Version None)
Quarter: 2006Q4

REPORT INFORMATION
  Report Type: 
  Country: None (occurrence: None)
  Receive Date: 20061205
  Receipt Date: 20060419
  Transmission Date: 20070319
  Serious: Yes (Hospitalization, Other)
  Sender: FDA-Public Use
  Company Number: PHBS2006JP05902

PATIENT
  Age: 10 Year
  Sex: Male

DRUGS (6)
  1. NEORAL [Suspect]
     Indication: RENAL TRANSPLANT
     Dosage: 50 MG/D
     Route: 048
     Dates: start: 20011001, end: 20040705
  2. NEORAL [Suspect]
     Dosage: 25 MG/D
     Route: 048
     Dates: start: 20040706
  3. MEDROL [Suspect]
     Indication: RENAL TRANSPLANT
     Dosage: 4 MG/D
     Route: 048
     Dates: start: 20011001, end: 20040630
  4. CELLCEPT [Suspect]
     Indication: RENAL TRANSPLANT
     Dosage: 500 MG/D
     Route: 048
     Dates: start: 20011001, end: 20040619
  5. CELLCEPT [Suspect]
     Dosage: 250 MG/D
     Route: 048
     Dates: start: 20040813
  6. GUSPERIMUS HYDROCHLORIDE [Concomitant]

REACTIONS (14)
  - BLOOD CREATINE PHOSPHOKINASE INCREASED [None]
  - DECUBITUS ULCER [None]
  - DYSURIA [None]
  - EPSTEIN-BARR VIRUS INFECTION [None]
  - INFLAMMATION [None]
  - KIDNEY TRANSPLANT REJECTION [None]
  - MYALGIA [None]
  - MYELITIS [None]
  - PAIN IN EXTREMITY [None]
  - PARAESTHESIA [None]
  - PYREXIA [None]
  - URINARY TRACT DISORDER [None]
  - VIRAL DNA TEST POSITIVE [None]
  - VIRAL MYOSITIS [None]
